FAERS Safety Report 7642490-7 (Version None)
Quarter: 2011Q3

REPORT INFORMATION
  Report Type: 
  Country: None (occurrence: None)
  Receive Date: 20110728
  Receipt Date: 20110719
  Transmission Date: 20111222
  Serious: Yes (Other)
  Sender: FDA-Public Use
  Company Number: CA-JNJFOC-20110708263

PATIENT
  Sex: Female

DRUGS (2)
  1. REMICADE [Suspect]
     Indication: RHEUMATOID ARTHRITIS
     Route: 042
     Dates: start: 20110612, end: 20110719
  2. REMICADE [Suspect]
     Route: 042
     Dates: start: 20080320, end: 20090525

REACTIONS (2)
  - MALIGNANT MELANOMA [None]
  - DRUG EFFECT DECREASED [None]
